FAERS Safety Report 9812736 (Version 1)
Quarter: 2014Q1

REPORT INFORMATION
  Report Type: Spontaneous
  Country: US (occurrence: US)
  Receive Date: 20140113
  Receipt Date: 20140113
  Transmission Date: 20141002
  Serious: Yes (Hospitalization)
  Sender: FDA-Public Use
  Company Number: US-AMGEN-USASP2014001866

PATIENT
  Age: 66 Year
  Sex: Female
  Weight: 88.44 kg

DRUGS (12)
  1. ENBREL [Suspect]
     Indication: PRODUCT USED FOR UNKNOWN INDICATION
     Dosage: 50 MG, QWK
     Route: 058
     Dates: end: 201311
  2. CYMBALTA [Concomitant]
     Dosage: 20 MG, UNK
  3. CELEBREX [Concomitant]
     Dosage: 100 MG, UNK
  4. ZOLPIDEM [Concomitant]
     Dosage: 10 MG, UNK
  5. TRAZODONE [Concomitant]
     Dosage: 50 MG, UNK
  6. METOPROLOL TARTRATE [Concomitant]
     Dosage: 100 MG, UNK
  7. IMITREX                            /01044801/ [Concomitant]
     Dosage: 25 MG, UNK
  8. VITAMIN B12                        /00056201/ [Concomitant]
     Dosage: 500 MUG, UNK
  9. PRILOSEC                           /00661201/ [Concomitant]
     Dosage: 10 MG, UNK
  10. MECLIZINE                          /00072801/ [Concomitant]
     Dosage: 12.5 MG, UNK
  11. FOLIC ACID [Concomitant]
     Dosage: UNK
  12. TACLONEX [Concomitant]
     Dosage: UNK

REACTIONS (2)
  - Rash [Unknown]
  - Cellulitis [Unknown]
